FAERS Safety Report 17244539 (Version 2)
Quarter: 2020Q1

REPORT INFORMATION
  Report Type: Spontaneous
  Country: AU (occurrence: AU)
  Receive Date: 20200107
  Receipt Date: 20200129
  Transmission Date: 20200409
  Serious: Yes (Hospitalization, Other)
  Sender: FDA-Public Use
  Company Number: AU-GILEAD-2020-0445582

PATIENT
  Age: 59 Year
  Sex: Male

DRUGS (6)
  1. VALPROATE [Concomitant]
     Active Substance: VALPROIC ACID
  2. GABAPENTIN. [Concomitant]
     Active Substance: GABAPENTIN
  3. CARBAMAZEPINE. [Concomitant]
     Active Substance: CARBAMAZEPINE
  4. LEVETIRACETAM. [Concomitant]
     Active Substance: LEVETIRACETAM
  5. BIKTARVY [Suspect]
     Active Substance: BICTEGRAVIR SODIUM\EMTRICITABINE\TENOFOVIR ALAFENAMIDE FUMARATE
     Indication: PRODUCT USED FOR UNKNOWN INDICATION
     Dosage: UNK
     Route: 065
     Dates: start: 20191224
  6. CLOBAZAM. [Concomitant]
     Active Substance: CLOBAZAM

REACTIONS (2)
  - Seizure [Unknown]
  - Atrial fibrillation [Unknown]

NARRATIVE: CASE EVENT DATE: 20191224
